FAERS Safety Report 4352912-5 (Version None)
Quarter: 2004Q2

REPORT INFORMATION
  Report Type: 
  Country: None (occurrence: None)
  Receive Date: 20040430
  Receipt Date: 20040304
  Transmission Date: 20050107
  Serious: No
  Sender: FDA-Public Use
  Company Number: 205074

PATIENT
  Age: 62 Year
  Sex: Female

DRUGS (2)
  1. XOLAIR [Suspect]
     Indication: ASTHMA
     Dosage: 300 MG, 2/MONTH
     Dates: start: 20040210
  2. ZETIA [Concomitant]

REACTIONS (1)
  - BLOOD GLUCOSE INCREASED [None]
